FAERS Safety Report 10221401 (Version 1)
Quarter: 2014Q2

REPORT INFORMATION
  Report Type: Spontaneous
  Country: US (occurrence: None)
  Receive Date: 20140605
  Receipt Date: 20140605
  Transmission Date: 20141212
  Serious: Yes (Disabling)
  Sender: FDA-Public Use
  Company Number: None

PATIENT
  Age: 62 Year
  Sex: Female
  Weight: 58.6 kg

DRUGS (1)
  1. LISINOPRIL [Suspect]
     Indication: BUNDLE BRANCH BLOCK LEFT
     Dates: start: 2013, end: 2014

REACTIONS (2)
  - Deafness [None]
  - Tinnitus [None]
